FAERS Safety Report 6422939-8 (Version None)
Quarter: 2009Q4

REPORT INFORMATION
  Report Type: 
  Country: None (occurrence: None)
  Receive Date: 20091102
  Receipt Date: 20091027
  Transmission Date: 20100525
  Serious: Yes (Death, Other)
  Sender: FDA-Public Use
  Company Number: PHEH2009US14441

PATIENT
  Sex: Male
  Weight: 97.052 kg

DRUGS (8)
  1. EXJADE [Suspect]
     Indication: MYELODYSPLASTIC SYNDROME
     Dosage: 2125 MG, QD
     Route: 048
     Dates: start: 20090603
  2. EXJADE [Suspect]
     Indication: MYELOPROLIFERATIVE DISORDER
  3. FINASTERIDE [Concomitant]
     Indication: BENIGN PROSTATIC HYPERPLASIA
     Dosage: 5 MG, UNK
     Route: 048
  4. GLIMEPIRIDE [Concomitant]
     Indication: DIABETES MELLITUS
     Dosage: 1 MG, UNK
     Route: 048
  5. HYDROCHLOROTHIAZIDE [Concomitant]
     Indication: HYPERTENSION
     Dosage: 25 MG, UNK
     Route: 048
  6. PANTOPRAZOLE [Concomitant]
     Indication: GASTROOESOPHAGEAL REFLUX DISEASE
     Dosage: 40 MG, UNK
     Route: 048
  7. QUINAPRIL [Concomitant]
     Indication: HYPERTENSION
     Dosage: UNK
  8. REQUIP [Concomitant]
     Dosage: 1 MG, UNK
     Route: 048

REACTIONS (6)
  - ANAEMIA [None]
  - CHRONIC MYELOMONOCYTIC LEUKAEMIA [None]
  - LEUKOCYTOSIS [None]
  - MALIGNANT NEOPLASM PROGRESSION [None]
  - PNEUMONIA [None]
  - THROMBOCYTOPENIA [None]
